FAERS Safety Report 17445319 (Version 10)
Quarter: 2021Q2

REPORT INFORMATION
  Report Type: Report from Study
  Country: US (occurrence: US)
  Receive Date: 20200221
  Receipt Date: 20210624
  Transmission Date: 20210716
  Serious: Yes (Hospitalization, Other)
  Sender: FDA-Public Use
  Company Number: US-SHIRE-US202005999

PATIENT
  Age: 64 Year
  Sex: Female

DRUGS (25)
  1. TEDUGLUTIDE [Suspect]
     Active Substance: TEDUGLUTIDE
     Dosage: 1.75 MILLIGRAM, 1X/DAY:QD
     Route: 050
  2. OPIUM. [Concomitant]
     Active Substance: OPIUM
  3. TEDUGLUTIDE [Suspect]
     Active Substance: TEDUGLUTIDE
     Dosage: UNK, OTHER (EVERY 3 DAYS)
     Route: 050
  4. TEDUGLUTIDE [Suspect]
     Active Substance: TEDUGLUTIDE
     Dosage: UNK, OTHER (EVERY 3 DAYS)
     Route: 050
  5. TEDUGLUTIDE [Suspect]
     Active Substance: TEDUGLUTIDE
     Dosage: 1.75 MILLIGRAM, 1X/DAY:QD
     Route: 050
  6. TEDUGLUTIDE [Suspect]
     Active Substance: TEDUGLUTIDE
     Dosage: 0.175 MILLILITER, 1X/DAY:QD
     Route: 050
     Dates: end: 20200220
  7. TEDUGLUTIDE [Suspect]
     Active Substance: TEDUGLUTIDE
     Dosage: UNK, OTHER (EVERY 3 DAYS)
     Route: 050
  8. TEDUGLUTIDE [Suspect]
     Active Substance: TEDUGLUTIDE
     Dosage: UNK, OTHER (EVERY 3 DAYS)
     Route: 050
  9. TEDUGLUTIDE [Suspect]
     Active Substance: TEDUGLUTIDE
     Dosage: 0.175 MILLILITER, 1X/DAY:QD
     Route: 050
     Dates: end: 20200220
  10. TEDUGLUTIDE [Suspect]
     Active Substance: TEDUGLUTIDE
     Dosage: UNK, OTHER (EVERY 3 DAYS)
     Route: 050
     Dates: start: 20200306
  11. TEDUGLUTIDE [Suspect]
     Active Substance: TEDUGLUTIDE
     Dosage: 1.75 MILLIGRAM, 1X/DAY:QD
     Route: 050
  12. TEDUGLUTIDE [Suspect]
     Active Substance: TEDUGLUTIDE
     Dosage: UNK, OTHER (EVERY 3 DAYS)
     Route: 050
     Dates: start: 20200306
  13. TEDUGLUTIDE [Suspect]
     Active Substance: TEDUGLUTIDE
     Indication: SHORT-BOWEL SYNDROME
     Dosage: 1.75 MILLIGRAM, 1X/DAY:QD
     Route: 058
     Dates: start: 20200206
  14. TEDUGLUTIDE [Suspect]
     Active Substance: TEDUGLUTIDE
     Dosage: UNK, OTHER (EVERY 3 DAYS)
     Route: 050
  15. TEDUGLUTIDE [Suspect]
     Active Substance: TEDUGLUTIDE
     Dosage: UNK, OTHER (EVERY 3 DAYS)
     Route: 050
  16. TEDUGLUTIDE [Suspect]
     Active Substance: TEDUGLUTIDE
     Dosage: UNK, OTHER (EVERY 3 DAYS)
     Route: 050
     Dates: start: 20200306
  17. TEDUGLUTIDE [Suspect]
     Active Substance: TEDUGLUTIDE
     Dosage: 1.75 MILLIGRAM, 1X/DAY:QD
     Route: 050
  18. TEDUGLUTIDE [Suspect]
     Active Substance: TEDUGLUTIDE
     Dosage: UNK, OTHER (EVERY 3 DAYS)
     Route: 050
  19. TEDUGLUTIDE [Suspect]
     Active Substance: TEDUGLUTIDE
     Indication: SHORT-BOWEL SYNDROME
     Dosage: 1.75 MILLIGRAM, 1X/DAY:QD
     Route: 058
     Dates: start: 20200206
  20. TEDUGLUTIDE [Suspect]
     Active Substance: TEDUGLUTIDE
     Indication: SHORT-BOWEL SYNDROME
     Dosage: 1.75 MILLIGRAM, 1X/DAY:QD
     Route: 058
     Dates: start: 20200206
  21. TEDUGLUTIDE [Suspect]
     Active Substance: TEDUGLUTIDE
     Dosage: 0.175 MILLILITER, 1X/DAY:QD
     Route: 050
     Dates: end: 20200220
  22. TEDUGLUTIDE [Suspect]
     Active Substance: TEDUGLUTIDE
     Indication: SHORT-BOWEL SYNDROME
     Dosage: 1.75 MILLIGRAM, 1X/DAY:QD
     Route: 058
     Dates: start: 20200206
  23. TEDUGLUTIDE [Suspect]
     Active Substance: TEDUGLUTIDE
     Dosage: 0.175 MILLILITER, 1X/DAY:QD
     Route: 050
     Dates: end: 20200220
  24. TEDUGLUTIDE [Suspect]
     Active Substance: TEDUGLUTIDE
     Dosage: UNK, OTHER (EVERY 3 DAYS)
     Route: 050
     Dates: start: 20200306
  25. TEDUGLUTIDE [Suspect]
     Active Substance: TEDUGLUTIDE
     Dosage: UNK, OTHER (EVERY 3 DAYS)
     Route: 050

REACTIONS (10)
  - Muscle spasms [Not Recovered/Not Resolved]
  - Surgery [Not Recovered/Not Resolved]
  - Vascular device infection [Unknown]
  - Stoma site oedema [Recovered/Resolved]
  - Stoma site erythema [Recovered/Resolved]
  - Off label use [Unknown]
  - Stoma site pain [Unknown]
  - Malaise [Unknown]
  - Stoma site extravasation [Unknown]
  - Product dose omission issue [Unknown]

NARRATIVE: CASE EVENT DATE: 20200210
